FAERS Safety Report 7970228-2 (Version None)
Quarter: 2011Q4

REPORT INFORMATION
  Report Type: 
  Country: None (occurrence: None)
  Receive Date: 20111212
  Receipt Date: 20111201
  Transmission Date: 20120403
  Serious: Yes (Hospitalization)
  Sender: FDA-Public Use
  Company Number: NZ-SANOFI-AVENTIS-2011SA080271

PATIENT
  Age: 46 Year
  Sex: Male

DRUGS (3)
  1. ALL OTHER THERAPEUTIC PRODUCTS [Suspect]
     Indication: CORONARY ARTERY DISEASE
     Route: 065
     Dates: start: 20101015, end: 20101015
  2. ASPIRIN [Suspect]
     Indication: ANTIPLATELET THERAPY
     Dates: start: 20101011
  3. PLAVIX [Suspect]
     Indication: ANTIPLATELET THERAPY
     Route: 048
     Dates: start: 20101016

REACTIONS (1)
  - GASTRITIS [None]
